FAERS Safety Report 9240122 (Version 1)
Quarter: 2013Q2

REPORT INFORMATION
  Report Type: Spontaneous
  Country: DE (occurrence: None)
  Receive Date: 20130417
  Receipt Date: 20130417
  Transmission Date: 20140414
  Serious: Yes (Hospitalization)
  Sender: FDA-Public Use
  Company Number: 1304-487

PATIENT
  Age: 76 Year
  Sex: Male

DRUGS (1)
  1. EYLEA [Suspect]
     Indication: AGE-RELATED MACULAR DEGENERATION
     Dates: start: 20130327

REACTIONS (4)
  - Eye infection [None]
  - Blindness unilateral [None]
  - Vision blurred [None]
  - Vision blurred [None]
